FAERS Safety Report 12443143 (Version 1)
Quarter: 2016Q2

REPORT INFORMATION
  Report Type: Report from Study
  Country: NL (occurrence: NL)
  Receive Date: 20160607
  Receipt Date: 20160607
  Transmission Date: 20160815
  Serious: Yes (Other)
  Sender: FDA-Public Use
  Company Number: NL-AMGEN-NLDSL2016071066

PATIENT
  Age: 81 Year
  Sex: Female

DRUGS (24)
  1. CLOPIDOGREL [Concomitant]
     Active Substance: CLOPIDOGREL BISULFATE
     Dosage: 75 MG, UNK
     Dates: start: 20141204
  2. DEXTRAN 70 W/HYPROMELLOSE [Concomitant]
     Dosage: 1/3MG/ML FL 15 ML
     Dates: start: 20160317
  3. AMOXICILLINE [Concomitant]
     Active Substance: AMOXICILLIN
     Dosage: 500 MG, QID
     Dates: start: 20160512, end: 20160518
  4. BECLOMETASON [Concomitant]
     Active Substance: BECLOMETHASONE DIPROPIONATE
     Dosage: 50 MUG, UNK
     Dates: start: 20160511
  5. COLECALCIFEROL [Concomitant]
     Active Substance: CHOLECALCIFEROL
     Dosage: 25000IE/ML
     Dates: start: 20160502, end: 20160522
  6. INSULIN GLARGINE [Concomitant]
     Active Substance: INSULIN GLARGINE
     Dosage: 100E/ML (PEN 300E+3ML)
     Dates: start: 20160506, end: 20160520
  7. CALCIUM CARBONATE W/COLECALCIFEROL [Concomitant]
     Active Substance: CALCIUM CARBONATE\CHOLECALCIFEROL
     Dosage: 125G/400IE, QD
     Dates: start: 20160526, end: 20160531
  8. SIMVASTATINE [Concomitant]
     Active Substance: SIMVASTATIN
     Dosage: 40 MG, QD
     Dates: start: 20141204
  9. PANTOPRAZOL SANDOZ [Concomitant]
     Dosage: 40 MG, UNK
     Dates: start: 20160526, end: 20160531
  10. GREPID [Concomitant]
     Active Substance: CLOPIDOGREL BESILATE
     Dosage: 75 MG, QD
     Dates: start: 20160526, end: 20160531
  11. TEMAZEPAM. [Concomitant]
     Active Substance: TEMAZEPAM
     Dosage: 10 MG, UNK
     Dates: start: 20160323, end: 20160409
  12. XGEVA [Suspect]
     Active Substance: DENOSUMAB
     Indication: BREAST CANCER METASTATIC
     Dosage: 120 MG, Q4WK
     Route: 058
     Dates: start: 20130410
  13. PANTOPRAZOL [Concomitant]
     Active Substance: PANTOPRAZOLE SODIUM
     Dosage: 40 MG, QD
     Dates: start: 20141204
  14. OXYCODON [Concomitant]
     Active Substance: OXYCODONE
     Dosage: 5 MG, BID
     Dates: start: 20160512, end: 20160519
  15. SOTALOL. [Concomitant]
     Active Substance: SOTALOL
     Dosage: 80 MG, BID
     Dates: start: 20160526, end: 20160531
  16. METFORMINE HCL [Concomitant]
     Active Substance: METFORMIN HYDROCHLORIDE
     Dosage: 500 MG, UNK
     Dates: start: 20160526, end: 20160531
  17. ATORVASTATINE [Concomitant]
     Active Substance: ATORVASTATIN
     Dosage: 40 MG, QD
     Dates: start: 20160526, end: 20160531
  18. PERINDOPRIL TERT BUTYLAMINE/INDAPAMIDE SANDOZ [Concomitant]
     Dosage: 4/1.25MG
     Dates: start: 20141204
  19. FENTANYL SANDOZ [Concomitant]
     Active Substance: FENTANYL
     Dosage: 50 MUG, QD
     Dates: start: 20160420
  20. TAMOXIFEN SANDOZ [Concomitant]
     Active Substance: TAMOXIFEN
     Dosage: 20 MG, QD
     Dates: start: 20160526, end: 20160531
  21. METFORMINE [Concomitant]
     Active Substance: METFORMIN HYDROCHLORIDE
     Dosage: 500 MG, BID
     Dates: start: 20160526, end: 20160531
  22. PERINDOPRIL TERT BUTYLAMINE GLENMARK [Concomitant]
     Dosage: 4/1, 25MG
     Dates: start: 20160526, end: 20160531
  23. DICLOFENAC SODIUM. [Concomitant]
     Active Substance: DICLOFENAC SODIUM
     Dosage: UNK
     Dates: start: 20160404, end: 20160513
  24. DALTEPARINE SODIQUE [Concomitant]
     Dosage: 25.000IE/ML
     Dates: start: 20140801, end: 20160413

REACTIONS (3)
  - Pulmonary embolism [Unknown]
  - Diarrhoea [Unknown]
  - Abdominal wall haematoma [Unknown]

NARRATIVE: CASE EVENT DATE: 20130625
